FAERS Safety Report 8973499 (Version 1)
Quarter: 2012Q4

REPORT INFORMATION
  Report Type: 
  Country: US (occurrence: US)
  Receive Date: 20121219
  Receipt Date: 20121219
  Transmission Date: 20130627
  Serious: Yes (Other)
  Sender: FDA-Public Use
  Company Number: US-SANOFI-AVENTIS-2012SA092680

PATIENT
  Age: 53 Year
  Sex: Male

DRUGS (4)
  1. FLUOROURACIL [Suspect]
     Indication: RECTAL CANCER METASTATIC
     Route: 065
  2. OXALIPLATIN [Suspect]
     Indication: RECTAL CANCER METASTATIC
     Route: 065
  3. FOLINIC ACID [Suspect]
     Indication: RECTAL CANCER METASTATIC
     Route: 065
  4. CETUXIMAB [Suspect]
     Indication: RECTAL CANCER METASTATIC
     Route: 065

REACTIONS (2)
  - Fistula [Unknown]
  - Small intestinal obstruction [Unknown]
